FAERS Safety Report 8298940-9 (Version None)
Quarter: 2012Q2

REPORT INFORMATION
  Report Type: 
  Country: None (occurrence: None)
  Receive Date: 20120419
  Receipt Date: 20120404
  Transmission Date: 20120825
  Serious: Yes (Other)
  Sender: FDA-Public Use
  Company Number: FR-ARROW GEN-2012-06158

PATIENT
  Age: 4 Year
  Sex: Male

DRUGS (2)
  1. AMLODIPINE [Suspect]
     Indication: HYPERTENSION
     Dosage: 0.5 MG/KG, DAILY
     Route: 065
  2. TACROLIMUS [Suspect]
     Indication: RENAL TRANSPLANT
     Dosage: 2.5 MG, DAILY
     Route: 065
     Dates: start: 20091001

REACTIONS (2)
  - DRUG INTERACTION [None]
  - DRUG CLEARANCE DECREASED [None]
